FAERS Safety Report 16904590 (Version 1)
Quarter: 2019Q4

REPORT INFORMATION
  Report Type: Spontaneous
  Country: US (occurrence: US)
  Receive Date: 20191009
  Receipt Date: 20191009
  Transmission Date: 20200122
  Serious: No
  Sender: FDA-Public Use
  Company Number: None

PATIENT
  Age: 49 Year
  Sex: Male
  Weight: 100.35 kg

DRUGS (13)
  1. AMLOPINE [Concomitant]
     Active Substance: AMLODIPINE BESYLATE
  2. ADDERALL [Concomitant]
     Active Substance: AMPHETAMINE ASPARTATE\AMPHETAMINE SULFATE\DEXTROAMPHETAMINE SACCHARATE\DEXTROAMPHETAMINE SULFATE
  3. ZOFRAN [Concomitant]
     Active Substance: ONDANSETRON HYDROCHLORIDE
  4. REMICADE [Suspect]
     Active Substance: INFLIXIMAB
  5. PROZAC [Concomitant]
     Active Substance: FLUOXETINE HYDROCHLORIDE
  6. VITAMIN D [Concomitant]
     Active Substance: VITAMIN D NOS
  7. HUMIRA [Suspect]
     Active Substance: ADALIMUMAB
     Indication: COLITIS ULCERATIVE
     Dosage: ?          QUANTITY:2 INJECTION(S);OTHER FREQUENCY:EVERY 14 DAYS;?
     Route: 058
  8. LITHIUM. [Concomitant]
     Active Substance: LITHIUM
  9. HUMIRIA [Concomitant]
  10. SALINE [Concomitant]
     Active Substance: SODIUM CHLORIDE
  11. IRON [Concomitant]
     Active Substance: IRON
  12. SEQUEL [Concomitant]
  13. MULTIVITAMIN [Concomitant]
     Active Substance: VITAMINS

REACTIONS (2)
  - Skin disorder [None]
  - Sinusitis [None]

NARRATIVE: CASE EVENT DATE: 20190912
